FAERS Safety Report 7549161 (Version 5)
Quarter: 2012Q4

REPORT INFORMATION
  Report Type: 
  Country: CA (occurrence: CA)
  Receive Date: 20100820
  Receipt Date: 20121213
  Transmission Date: 20130627
  Serious: Yes (Other)
  Sender: FDA-Public Use
  Company Number: PHHY2010CA51802

PATIENT
  Age: 66 None
  Sex: Female

DRUGS (4)
  1. ACLASTA [Suspect]
     Indication: OSTEOPOROSIS
     Dosage: 5 mg, UNK
     Route: 042
     Dates: start: 20080828
  2. ACLASTA [Suspect]
     Dosage: 5 mg, UNK
     Route: 042
     Dates: start: 20090909
  3. ACLASTA [Suspect]
     Dosage: 5 mg, UNK
     Route: 042
     Dates: start: 20100907
  4. ACLASTA [Suspect]
     Dosage: 5 mg, UNK
     Route: 042
     Dates: start: 20110926

REACTIONS (9)
  - Foot fracture [Unknown]
  - Oedema peripheral [Unknown]
  - Pain [Unknown]
  - Heart rate irregular [Unknown]
  - Stress fracture [Recovered/Resolved]
  - Pain in jaw [Unknown]
  - Mastication disorder [Unknown]
  - Heart rate increased [Recovered/Resolved]
  - Chest discomfort [Recovered/Resolved]
